FAERS Safety Report 10007905 (Version 1)
Quarter: 2014Q1

REPORT INFORMATION
  Report Type: Spontaneous
  Country: IT (occurrence: IT)
  Receive Date: 20140313
  Receipt Date: 20140313
  Transmission Date: 20141002
  Serious: Yes (Other)
  Sender: FDA-Public Use
  Company Number: IT-BRISTOL-MYERS SQUIBB COMPANY-20381984

PATIENT
  Age: 16 Year
  Sex: Female

DRUGS (1)
  1. ARIPIPRAZOLE [Suspect]
     Indication: TOURETTE^S DISORDER
     Route: 048
     Dates: start: 20130510

REACTIONS (3)
  - Bundle branch block right [Unknown]
  - Sinus bradycardia [Unknown]
  - Off label use [Unknown]
